FAERS Safety Report 5748464-5 (Version None)
Quarter: 2008Q2

REPORT INFORMATION
  Report Type: 
  Country: None (occurrence: None)
  Receive Date: 20080523
  Receipt Date: 20080512
  Transmission Date: 20081010
  Serious: Yes (Other)
  Sender: FDA-Public Use
  Company Number: US-PFIZER INC-2008040782

PATIENT
  Age: 37 Year
  Sex: Male

DRUGS (4)
  1. GEODON [Suspect]
     Indication: FLIGHT OF IDEAS
     Dates: start: 20071126, end: 20071201
  2. GEODON [Suspect]
     Indication: ANXIETY
  3. GEODON [Suspect]
     Indication: PARANOIA
  4. SEROQUEL [Concomitant]
     Indication: BIPOLAR DISORDER
     Route: 048

REACTIONS (2)
  - GASTROINTESTINAL HAEMORRHAGE [None]
  - HAEMATOCHEZIA [None]
